FAERS Safety Report 12071533 (Version 2)
Quarter: 2016Q1

REPORT INFORMATION
  Report Type: Spontaneous
  Country: IT (occurrence: IT)
  Receive Date: 20160212
  Receipt Date: 20160216
  Transmission Date: 20160526
  Serious: Yes (Hospitalization)
  Sender: FDA-Public Use
  Company Number: IT-TEVA-632042ACC

PATIENT
  Age: 44 Year
  Sex: Female

DRUGS (7)
  1. NEORECORMON - 30.000 UI [Concomitant]
     Indication: PRODUCT USED FOR UNKNOWN INDICATION
  2. EXVIERA - 250 MG COMPRESSA RIVESTITA CON FILM - ABBVIE LTD [Suspect]
     Active Substance: DASABUVIR
     Indication: CHRONIC HEPATITIS C
     Dosage: 500 MILLIGRAM DAILY;
     Route: 048
     Dates: start: 20150313, end: 20150827
  3. FOLINA - 5 MG CAPSULE MOLLI [Concomitant]
     Indication: PRODUCT USED FOR UNKNOWN INDICATION
  4. OMEPRAZOLE. [Concomitant]
     Active Substance: OMEPRAZOLE
     Indication: PRODUCT USED FOR UNKNOWN INDICATION
  5. VIEKIRAX - 12.5MG/75MG/50MG COMPRESSA RIVESTITA CON FILM [Suspect]
     Active Substance: OMBITASVIR\PARITAPREVIR\RITONAVIR
     Indication: CHRONIC HEPATITIS C
     Dosage: 25 MILLIGRAM DAILY;
     Route: 048
     Dates: start: 20150313, end: 20150827
  6. SIDERAL FORTE [Concomitant]
     Dosage: 1 CAPSULE DAILY
  7. RIBAVIRIN. [Suspect]
     Active Substance: RIBAVIRIN
     Indication: CHRONIC HEPATITIS C
     Dosage: 800 MILLIGRAM DAILY;
     Route: 048
     Dates: start: 20150313, end: 20150827

REACTIONS (1)
  - Subarachnoid haemorrhage [Recovered/Resolved with Sequelae]

NARRATIVE: CASE EVENT DATE: 20150901
